FAERS Safety Report 8369412-8 (Version None)
Quarter: 2012Q2

REPORT INFORMATION
  Report Type: 
  Country: None (occurrence: None)
  Receive Date: 20120518
  Receipt Date: 20120510
  Transmission Date: 20120825
  Serious: Yes (Other)
  Sender: FDA-Public Use
  Company Number: US-PFIZER INC-2012114659

PATIENT

DRUGS (4)
  1. LOPRESSOR [Concomitant]
  2. DIAZEPAM [Concomitant]
  3. METFORMIN [Concomitant]
  4. VIAGRA [Suspect]
     Dosage: 100 MG, 1/2-1 TABLET AS DIRECTED

REACTIONS (1)
  - INTERVERTEBRAL DISC DEGENERATION [None]
